FAERS Safety Report 5952491-2 (Version None)
Quarter: 2008Q4

REPORT INFORMATION
  Report Type: 
  Country: None (occurrence: None)
  Receive Date: 20081113
  Receipt Date: 20081103
  Transmission Date: 20090506
  Serious: Yes (Hospitalization)
  Sender: FDA-Public Use
  Company Number: IT-PFIZER INC-2008094819

PATIENT
  Age: 47 Year
  Sex: Female

DRUGS (2)
  1. LITHIUM [Suspect]
     Indication: BIPOLAR DISORDER
     Dosage: TEXT:40 TABLETS
     Route: 048
  2. CLONAZEPAM [Suspect]
     Dosage: TEXT:20 ML
     Route: 048

REACTIONS (5)
  - BLOOD CREATININE INCREASED [None]
  - INTENTIONAL OVERDOSE [None]
  - OLIGURIA [None]
  - SUICIDE ATTEMPT [None]
  - THERAPEUTIC AGENT TOXICITY [None]
